FAERS Safety Report 19831385 (Version 1)
Quarter: 2021Q3

REPORT INFORMATION
  Report Type: Spontaneous
  Country: GB (occurrence: GB)
  Receive Date: 20210915
  Receipt Date: 20210915
  Transmission Date: 20211014
  Serious: Yes (Disabling)
  Sender: FDA-Public Use
  Company Number: GB-AMGEN-GBRSP2021140057

PATIENT
  Sex: Male

DRUGS (1)
  1. AMGEVITA [Suspect]
     Active Substance: ADALIMUMAB
     Indication: PSORIASIS
     Dosage: UNK
     Route: 058
     Dates: start: 20210821

REACTIONS (5)
  - Asthma [Recovering/Resolving]
  - Peak expiratory flow rate decreased [Recovering/Resolving]
  - Dyspnoea [Recovering/Resolving]
  - Sleep disorder [Recovering/Resolving]
  - Wheezing [Recovering/Resolving]

NARRATIVE: CASE EVENT DATE: 20210823
